FAERS Safety Report 25811060 (Version 1)
Quarter: 2025Q3

REPORT INFORMATION
  Report Type: Report from Study
  Country: US (occurrence: US)
  Receive Date: 20250917
  Receipt Date: 20250917
  Transmission Date: 20251021
  Serious: Yes (Other)
  Sender: ABBVIE
  Company Number: US-ABBVIE-6103441

PATIENT
  Age: 52 Year
  Sex: Female

DRUGS (3)
  1. RINVOQ [Suspect]
     Active Substance: UPADACITINIB
     Indication: Rheumatoid arthritis
     Dosage: STRENGTH: 15MG?EXTENDED RELEASE TABLET
     Route: 048
     Dates: start: 20241216, end: 20250117
  2. RINVOQ [Suspect]
     Active Substance: UPADACITINIB
     Indication: Rheumatoid arthritis
     Dosage: STRENGTH: 15MG?EXTENDED RELEASE TABLET
     Route: 048
     Dates: end: 202504
  3. RINVOQ [Suspect]
     Active Substance: UPADACITINIB
     Indication: Rheumatoid arthritis
     Dosage: STRENGTH: 15MG?EXTENDED RELEASE TABLET
     Route: 048
     Dates: start: 202507, end: 20250820

REACTIONS (8)
  - Limb operation [Unknown]
  - Ear infection [Unknown]
  - Nasal inflammation [Unknown]
  - Rheumatoid arthritis [Recovered/Resolved]
  - Pain [Unknown]
  - Middle ear effusion [Unknown]
  - Inflammatory bowel disease [Recovered/Resolved]
  - Rash [Recovered/Resolved]

NARRATIVE: CASE EVENT DATE: 20250101
